FAERS Safety Report 10729911 (Version 1)
Quarter: 2015Q1

REPORT INFORMATION
  Report Type: Report from Study
  Country: US (occurrence: US)
  Receive Date: 20150122
  Receipt Date: 20150122
  Transmission Date: 20150721
  Serious: Yes (Life-Threatening, Hospitalization)
  Sender: FDA-Public Use
  Company Number: US-ASTRAZENECA-2014SE79857

PATIENT
  Age: 685 Month
  Sex: Female
  Weight: 69.4 kg

DRUGS (13)
  1. CLONAZEPAM. [Concomitant]
     Active Substance: CLONAZEPAM
     Indication: PANIC ATTACK
  2. SEROQUEL XR [Suspect]
     Active Substance: QUETIAPINE FUMARATE
     Indication: BIPOLAR DISORDER
     Route: 048
  3. PAXIL [Suspect]
     Active Substance: PAROXETINE HYDROCHLORIDE
     Route: 065
  4. SEROQUEL XR [Suspect]
     Active Substance: QUETIAPINE FUMARATE
     Indication: BIPOLAR DISORDER
     Route: 048
  5. FENTANYL TRANSDERMAL SYSTEM [Concomitant]
     Active Substance: FENTANYL
     Indication: OSTEOARTHRITIS
  6. SIMVASTATIN. [Concomitant]
     Active Substance: SIMVASTATIN
     Indication: BLOOD TRIGLYCERIDES ABNORMAL
  7. LAMICTAL [Concomitant]
     Active Substance: LAMOTRIGINE
     Indication: PANIC ATTACK
  8. NEXIUM [Suspect]
     Active Substance: ESOMEPRAZOLE MAGNESIUM
     Indication: GASTROOESOPHAGEAL REFLUX DISEASE
     Route: 048
  9. FENTANYL TRANSDERMAL SYSTEM [Concomitant]
     Active Substance: FENTANYL
     Indication: BACK PAIN
  10. GABAPENTIN. [Concomitant]
     Active Substance: GABAPENTIN
     Indication: BACK PAIN
  11. LORATIDINE [Concomitant]
     Active Substance: LORATADINE
     Indication: SINUS DISORDER
  12. LAMICTAL [Concomitant]
     Active Substance: LAMOTRIGINE
     Indication: ANXIETY
  13. CLONAZEPAM. [Concomitant]
     Active Substance: CLONAZEPAM
     Indication: ANXIETY

REACTIONS (4)
  - Serotonin syndrome [Recovered/Resolved]
  - Intentional product misuse [Unknown]
  - Pyrexia [Recovered/Resolved]
  - Loss of consciousness [Recovered/Resolved]

NARRATIVE: CASE EVENT DATE: 201408
